FAERS Safety Report 10055787 (Version 1)
Quarter: 2014Q2

REPORT INFORMATION
  Report Type: Spontaneous
  Country: GB (occurrence: None)
  Receive Date: 20140401
  Receipt Date: 20140401
  Transmission Date: 20141212
  Serious: Yes (Hospitalization)
  Sender: FDA-Public Use
  Company Number: GB-DEXPHARM-20140135

PATIENT
  Age: 88 Year
  Sex: Female

DRUGS (5)
  1. MIRTAZAPINE [Suspect]
     Indication: DEPRESSION
     Dosage: AT NIGHT 30 MG MILLIGRAM(S) ?SEP. DOSAGES / INTERVAL: 1 IN 1 DAYS
     Route: 048
     Dates: end: 20140226
  2. OMEPRAZOLE [Suspect]
     Dosage: 20 MG MILLIGRAM(S) SEP. DOSAGES/INTERVAL: 1 IN 1 DAYS ORAL
     Route: 048
     Dates: end: 20140226
  3. PREDNISOLONE [Suspect]
     Indication: POLYMYALGIA RHEUMATICA
     Dosage: 5 MG MILLIGRAM(S) SEP. DOSAGES/INTERVAL: 1 IN 1 DAYS ORAL
     Route: 048
  4. XARELTO [Suspect]
     Indication: DEEP VEIN THROMBOSIS
     Dosage: 20 MG MILLIGRAM(S) SEP. DOSAGES/INTERVAL: 1 IN 1 DAYS ORAL
     Route: 048
     Dates: end: 20140226
  5. SENNA [Suspect]
     Indication: CONSTIPATION
     Dosage: DOSAGE TEXT: WHEN REQUIRED ORAL
     Route: 048

REACTIONS (2)
  - Drug interaction [None]
  - Neutropenia [None]
